FAERS Safety Report 13368256 (Version 1)
Quarter: 2017Q1

REPORT INFORMATION
  Report Type: Report from Study
  Country: DE (occurrence: DE)
  Receive Date: 20170324
  Receipt Date: 20170324
  Transmission Date: 20170429
  Serious: Yes (Life-Threatening, Other)
  Sender: FDA-Public Use
  Company Number: DE-ROCHE-1418485

PATIENT

DRUGS (1)
  1. TRASTUZUMAB [Suspect]
     Active Substance: TRASTUZUMAB
     Indication: HER-2 POSITIVE BREAST CANCER
     Route: 042

REACTIONS (5)
  - Arrhythmia [Unknown]
  - Cardiac failure congestive [Unknown]
  - Cardiotoxicity [Unknown]
  - Cardiac disorder [Unknown]
  - Ejection fraction decreased [Unknown]
